FAERS Safety Report 7127649-X (Version None)
Quarter: 2010Q4

REPORT INFORMATION
  Report Type: 
  Country: None (occurrence: None)
  Receive Date: 20101130
  Receipt Date: 20101117
  Transmission Date: 20110411
  Serious: Yes (Hospitalization)
  Sender: FDA-Public Use
  Company Number: US-BIOGENIDEC-2010BI040665

PATIENT
  Age: 64 Year
  Sex: Female

DRUGS (2)
  1. TYSABRI [Suspect]
     Indication: MULTIPLE SCLEROSIS
     Route: 042
     Dates: start: 20090616
  2. TYSABRI [Suspect]
     Route: 042
     Dates: start: 20070110, end: 20081105

REACTIONS (5)
  - ASTHENIA [None]
  - FALL [None]
  - FATIGUE [None]
  - GASTRIC HAEMORRHAGE [None]
  - INTRACRANIAL HAEMATOMA [None]
